FAERS Safety Report 5037078-0 (Version None)
Quarter: 2006Q2

REPORT INFORMATION
  Report Type: 
  Country: None (occurrence: None)
  Receive Date: 20060623
  Receipt Date: 20060613
  Transmission Date: 20061013
  Serious: Yes (Other)
  Sender: FDA-Public Use
  Company Number: 2006076420

PATIENT
  Age: 30 Year
  Sex: Male

DRUGS (2)
  1. TAHOR                            (ATORVASTATIN) [Suspect]
     Indication: DYSLIPIDAEMIA
     Dosage: 40 MG (1 IN 1 D)
     Route: 048
     Dates: start: 19960101
  2. EZETIMIBE                   (EZETIMIBE) [Concomitant]

REACTIONS (1)
  - INFERTILITY MALE [None]
